FAERS Safety Report 6555302-X (Version None)
Quarter: 2010Q1

REPORT INFORMATION
  Report Type: 
  Country: None (occurrence: None)
  Receive Date: 20100128
  Receipt Date: 20090403
  Transmission Date: 20100710
  Serious: No
  Sender: FDA-Public Use
  Company Number: A0778228A

PATIENT
  Sex: Male

DRUGS (1)
  1. WELLBUTRIN [Suspect]
     Indication: DRUG USE FOR UNKNOWN INDICATION
     Dosage: 150MG PER DAY

REACTIONS (4)
  - DISCOMFORT [None]
  - DYSKINESIA [None]
  - INSOMNIA [None]
  - UNEVALUABLE EVENT [None]
